FAERS Safety Report 6685003-9 (Version None)
Quarter: 2010Q2

REPORT INFORMATION
  Report Type: 
  Country: None (occurrence: None)
  Receive Date: 20100416
  Receipt Date: 20100409
  Transmission Date: 20101027
  Serious: Yes (Hospitalization)
  Sender: FDA-Public Use
  Company Number: US-SANOFI-AVENTIS-2010SA021165

PATIENT
  Age: 57 Year
  Sex: Female
  Weight: 90.71 kg

DRUGS (3)
  1. LANTUS [Suspect]
     Indication: TYPE 2 DIABETES MELLITUS
  2. ANALGESICS [Concomitant]
  3. AVANDAMET [Concomitant]

REACTIONS (1)
  - SMALL CELL LUNG CANCER METASTATIC [None]
